FAERS Safety Report 7932180-5 (Version None)
Quarter: 2011Q4

REPORT INFORMATION
  Report Type: 
  Country: None (occurrence: None)
  Receive Date: 20111121
  Receipt Date: 20111114
  Transmission Date: 20120403
  Serious: Yes (Hospitalization)
  Sender: FDA-Public Use
  Company Number: ZA-B.I. PHARMACEUTICALS,INC./RIDGEFIELD-2011-AP-00627ZA

PATIENT
  Sex: Female

DRUGS (7)
  1. TELMISARTAN [Suspect]
     Indication: HYPERTENSION
     Dosage: 80 MG
     Route: 048
     Dates: start: 20110913, end: 20111108
  2. CARLOC [Concomitant]
     Indication: HYPERTENSION
     Dosage: 12.5 MG
  3. ELZAM [Concomitant]
     Indication: FEELING OF RELAXATION
  4. OMEGA FATS [Concomitant]
     Indication: MOOD ALTERED
  5. PREMARIN [Concomitant]
     Indication: MENOPAUSE
  6. LEXAMIL [Concomitant]
     Indication: FEELING OF RELAXATION
  7. PRIMAQUINE [Concomitant]
     Indication: MALARIA PROPHYLAXIS

REACTIONS (1)
  - BLOOD SODIUM DECREASED [None]
